FAERS Safety Report 11334823 (Version 5)
Quarter: 2015Q3

REPORT INFORMATION
  Report Type: Spontaneous
  Country: US (occurrence: None)
  Receive Date: 20150731
  Receipt Date: 20150923
  Transmission Date: 20151125
  Serious: Yes (Hospitalization, Other)
  Sender: FDA-Public Use
  Company Number: RAP-001075-2015

PATIENT
  Age: 44 Year
  Sex: Female
  Weight: 35.8 kg

DRUGS (8)
  1. CYSTARAN (CYSTEAMINE HYDROCHLORIDE) [Concomitant]
  2. LEVOTHYROXINE (LEVOTHYROXINE) [Concomitant]
     Active Substance: LEVOTHYROXINE
  3. LEVETIRACETAM (LEVETIRACETAM) [Concomitant]
     Active Substance: LEVETIRACETAM
  4. GENGRAF (CYCLOSPORINE) [Concomitant]
  5. VIMPAT [Concomitant]
     Active Substance: LACOSAMIDE
  6. INSULIN N AND R (INSULIN ASPART AND INSULIN ASPART PROTAMINE) [Concomitant]
  7. PROCYSBI DELAYED-RELEASE [Suspect]
     Active Substance: CYSTEAMINE BITARTRATE
     Indication: CYSTINOSIS
     Route: 048
     Dates: start: 201501, end: 20150627
  8. PREDNISONE (PREDNISONE) [Concomitant]
     Active Substance: PREDNISONE

REACTIONS (11)
  - Urinary tract infection [None]
  - Pneumonia aspiration [None]
  - Dehydration [None]
  - Cerebral haemorrhage [None]
  - Salivary hypersecretion [None]
  - Gastrointestinal tube insertion [None]
  - Saliva altered [None]
  - Sepsis [None]
  - Feeding disorder [None]
  - Seizure [None]
  - Dysphagia [None]

NARRATIVE: CASE EVENT DATE: 201506
